FAERS Safety Report 7241724-0 (Version None)
Quarter: 2011Q1

REPORT INFORMATION
  Report Type: 
  Country: None (occurrence: None)
  Receive Date: 20110124
  Receipt Date: 20110120
  Transmission Date: 20110831
  Serious: Yes (Life-Threatening, Hospitalization)
  Sender: FDA-Public Use
  Company Number: PHHO2009BE12267

PATIENT
  Sex: Male

DRUGS (5)
  1. ACCUPRIL [Concomitant]
     Dosage: 5 MG, UNK
  2. INDAPAMIDE [Concomitant]
  3. AFINITOR [Suspect]
     Dosage: 10 MG, UNK
     Route: 048
     Dates: start: 20091018
  4. AFINITOR [Suspect]
     Indication: METASTATIC RENAL CELL CARCINOMA
     Dosage: 10 MG, UNK
     Route: 048
     Dates: start: 20090617, end: 20091003
  5. LIPITOR [Concomitant]

REACTIONS (5)
  - SWOLLEN TONGUE [None]
  - ANGIOEDEMA [None]
  - STRIDOR [None]
  - GLOSSITIS [None]
  - GLOSSODYNIA [None]
